FAERS Safety Report 23795223 (Version 1)
Quarter: 2024Q2

REPORT INFORMATION
  Report Type: Spontaneous
  Country: FR (occurrence: FR)
  Receive Date: 20240429
  Receipt Date: 20240429
  Transmission Date: 20240716
  Serious: Yes (Other)
  Sender: FDA-Public Use
  Company Number: None

PATIENT
  Age: 29 Year
  Sex: Male

DRUGS (1)
  1. TRAMADOL [Suspect]
     Active Substance: TRAMADOL\TRAMADOL HYDROCHLORIDE
     Indication: Product used for unknown indication
     Dosage: AT LEAST 1 TSP LP 100 MORNING AND EVENING???TRAMADOL BASE
     Route: 048
     Dates: start: 202310

REACTIONS (1)
  - Drug use disorder [Not Recovered/Not Resolved]
